FAERS Safety Report 5774311-1 (Version None)
Quarter: 2008Q2

REPORT INFORMATION
  Report Type: 
  Country: None (occurrence: None)
  Receive Date: 20080616
  Receipt Date: 20080605
  Transmission Date: 20081010
  Serious: Yes (Hospitalization)
  Sender: FDA-Public Use
  Company Number: AU-PFIZER INC-2007013604

PATIENT
  Sex: Female
  Weight: 113 kg

DRUGS (7)
  1. SU-011,248 [Suspect]
     Indication: RENAL CELL CARCINOMA
     Route: 048
  2. SU-011,248 [Suspect]
     Route: 048
  3. ATENOLOL [Concomitant]
     Route: 048
  4. LANSOPRAZOLE [Concomitant]
     Route: 048
  5. ACETAMINOPHEN [Concomitant]
     Route: 048
  6. CANDESARTAN [Concomitant]
     Route: 048
  7. HYDROCHLOROTHIAZIDE [Concomitant]
     Route: 048

REACTIONS (3)
  - DIZZINESS [None]
  - LETHARGY [None]
  - NAUSEA [None]
